FAERS Safety Report 7147805-4 (Version None)
Quarter: 2010Q4

REPORT INFORMATION
  Report Type: 
  Country: None (occurrence: None)
  Receive Date: 20101209
  Receipt Date: 20101129
  Transmission Date: 20110411
  Serious: Yes (Hospitalization)
  Sender: FDA-Public Use
  Company Number: US-SHIRE-SPV1-2010-02076

PATIENT
  Sex: Female

DRUGS (1)
  1. VPRIV [Suspect]
     Indication: GAUCHER'S DISEASE
     Dosage: 10 VIALS EVERY TWO WEEKS
     Route: 041
     Dates: start: 20100722

REACTIONS (3)
  - DIABETIC COMPLICATION [None]
  - FACIAL PAIN [None]
  - INFUSION RELATED REACTION [None]
